FAERS Safety Report 9720656 (Version 4)
Quarter: 2014Q1

REPORT INFORMATION
  Report Type: Spontaneous
  Country: JP (occurrence: JP)
  Receive Date: 20131129
  Receipt Date: 20140312
  Transmission Date: 20141002
  Serious: Yes (Death, Other)
  Sender: FDA-Public Use
  Company Number: PHHY2013JP137346

PATIENT
  Age: 52 Year
  Sex: Female

DRUGS (2)
  1. ZOMETA [Suspect]
     Indication: METASTASES TO BREAST
     Route: 042
     Dates: start: 200705
  2. PACLITAXEL [Suspect]
     Dosage: UNK
     Dates: start: 200705

REACTIONS (7)
  - Hepatic failure [Fatal]
  - Hepatic cirrhosis [Fatal]
  - Oedema [Unknown]
  - Ascites [Unknown]
  - Hypoaesthesia [Unknown]
  - Metastases to liver [Unknown]
  - Malignant neoplasm progression [Unknown]
